FAERS Safety Report 9882495 (Version 1)
Quarter: 2014Q1

REPORT INFORMATION
  Report Type: Spontaneous
  Country: IT (occurrence: IT)
  Receive Date: 20140207
  Receipt Date: 20140207
  Transmission Date: 20141002
  Serious: Yes (Hospitalization)
  Sender: FDA-Public Use
  Company Number: IT-ACTAVIS-2014-01575

PATIENT
  Age: 67 Year
  Sex: Male
  Weight: 108 kg

DRUGS (1)
  1. CLOPIDOGREL ACTAVIS [Suspect]
     Indication: ANGIOPLASTY
     Dosage: 75 MG, DAILY
     Route: 048
     Dates: start: 20131112, end: 20140107

REACTIONS (1)
  - Coronary artery restenosis [Recovered/Resolved]
